FAERS Safety Report 8124719-4 (Version None)
Quarter: 2012Q1

REPORT INFORMATION
  Report Type: 
  Country: None (occurrence: None)
  Receive Date: 20120209
  Receipt Date: 20120206
  Transmission Date: 20120608
  Serious: No
  Sender: FDA-Public Use
  Company Number: US-BAYER-2012-012703

PATIENT
  Sex: Female

DRUGS (3)
  1. HYDROCHLOROTHIAZIDE [Concomitant]
  2. ALEVE (CAPLET) [Suspect]
     Dosage: 1 TAB ONCE DAILY
     Route: 048
  3. ACETYLSALICYLIC ACID SRT [Suspect]
     Dosage: 81 MG, UNK
     Route: 048

REACTIONS (1)
  - NO ADVERSE EVENT [None]
